FAERS Safety Report 22090271 (Version 1)
Quarter: 2023Q1

REPORT INFORMATION
  Report Type: Spontaneous
  Country: CH (occurrence: CH)
  Receive Date: 20230313
  Receipt Date: 20230313
  Transmission Date: 20230418
  Serious: Yes (Life-Threatening, Other)
  Sender: FDA-Public Use
  Company Number: CH-MYLANLABS-2023M1025410

PATIENT
  Age: 35 Year
  Sex: Male

DRUGS (3)
  1. EPIPEN [Suspect]
     Active Substance: EPINEPHRINE
     Indication: Anaphylactic reaction
     Dosage: 0.3 MILLIGRAM
     Route: 058
  2. EPIPEN [Suspect]
     Active Substance: EPINEPHRINE
     Dosage: 0.3 MILLIGRAM
     Route: 058
  3. CLEMASTINE [Suspect]
     Active Substance: CLEMASTINE
     Indication: Anaphylactic reaction
     Dosage: 4 MILLIGRAM (2 AMP)
     Route: 065

REACTIONS (1)
  - Drug ineffective [Unknown]
